FAERS Safety Report 8972572 (Version 2)
Quarter: 2013Q1

REPORT INFORMATION
  Report Type: Spontaneous
  Country: US (occurrence: US)
  Receive Date: 20121219
  Receipt Date: 20130123
  Transmission Date: 20140127
  Serious: No
  Sender: FDA-Public Use
  Company Number: US-ELI_LILLY_AND_COMPANY-US201212002229

PATIENT
  Age: 79 Year
  Sex: Female
  Weight: 54.8 kg

DRUGS (9)
  1. FORTEO [Suspect]
     Indication: OSTEOPOROSIS
     Dosage: 20 UG, QD
     Route: 058
     Dates: start: 20120107, end: 20120511
  2. CALCIUM [Concomitant]
  3. ASPIRIN [Concomitant]
     Dosage: 325 MG, UNK
  4. IMODIUM [Concomitant]
     Dosage: 30 MG, UNK
  5. VYTORIN [Concomitant]
     Dosage: 20 MG, UNK
  6. NORVASC [Concomitant]
     Dosage: 45 MG, UNK
  7. KLOR-CON [Concomitant]
     Dosage: 20 MEQ, UNK
  8. METOPROLOL [Concomitant]
     Dosage: 25 MG, UNK
  9. OMEPRAZOLE [Concomitant]
     Dosage: 20 MG, UNK

REACTIONS (3)
  - Urinary retention [Recovering/Resolving]
  - Constipation [Recovering/Resolving]
  - Herpes zoster [Recovering/Resolving]
